FAERS Safety Report 10211237 (Version 2)
Quarter: 2014Q2

REPORT INFORMATION
  Report Type: Spontaneous
  Country: US (occurrence: US)
  Receive Date: 20140602
  Receipt Date: 20140605
  Transmission Date: 20141212
  Serious: Yes (Hospitalization)
  Sender: FDA-Public Use
  Company Number: US-GLAXOSMITHKLINE-A1036100A

PATIENT
  Age: 58 Year
  Sex: Male
  Weight: 117 kg

DRUGS (2)
  1. AVANDIA [Suspect]
     Indication: DIABETES MELLITUS
     Dosage: 4MG TWICE PER DAY
     Route: 048
     Dates: start: 20050801, end: 20070703
  2. AVANDAMET [Suspect]
     Indication: DIABETES MELLITUS
     Route: 048

REACTIONS (7)
  - Myocardial infarction [Unknown]
  - Cardiac disorder [Unknown]
  - Cardiac failure acute [Unknown]
  - Acute myocardial infarction [Unknown]
  - Atrial flutter [Unknown]
  - Ventricular tachycardia [Unknown]
  - Atrial fibrillation [Unknown]
